FAERS Safety Report 6226146-3 (Version None)
Quarter: 2009Q2

REPORT INFORMATION
  Report Type: 
  Country: None (occurrence: None)
  Receive Date: 20090612
  Receipt Date: 20090521
  Transmission Date: 20091009
  Serious: No
  Sender: FDA-Public Use
  Company Number: CA-PFIZER INC-2009216475

PATIENT
  Age: 61 Year

DRUGS (1)
  1. LIPITOR [Suspect]
     Dosage: 40 MG, UNK

REACTIONS (1)
  - JOINT STIFFNESS [None]
